FAERS Safety Report 23647066 (Version 1)
Quarter: 2024Q1

REPORT INFORMATION
  Report Type: Spontaneous
  Country: CN (occurrence: CN)
  Receive Date: 20240319
  Receipt Date: 20240319
  Transmission Date: 20240410
  Serious: Yes (Other)
  Sender: FDA-Public Use
  Company Number: CN-Jiangsu Hansoh Pharmaceutical Co., Ltd-2154521

PATIENT
  Age: 70 Year
  Sex: Female
  Weight: 70 kg

DRUGS (2)
  1. GEMCITABINE HYDROCHLORIDE [Suspect]
     Active Substance: GEMCITABINE HYDROCHLORIDE
     Route: 041
     Dates: start: 20240207, end: 20240207
  2. GEMCITABINE [Suspect]
     Active Substance: GEMCITABINE
     Route: 041
     Dates: start: 20240307, end: 20240307

REACTIONS (3)
  - Chest discomfort [Recovered/Resolved]
  - Off label use [Unknown]
  - Skin swelling [Recovered/Resolved]

NARRATIVE: CASE EVENT DATE: 20240307
